FAERS Safety Report 15814414 (Version 1)
Quarter: 2019Q1

REPORT INFORMATION
  Report Type: Spontaneous
  Country: GB (occurrence: GB)
  Receive Date: 20190111
  Receipt Date: 20190111
  Transmission Date: 20190417
  Serious: Yes (Hospitalization)
  Sender: FDA-Public Use
  Company Number: GB-PFIZER INC-2019014129

PATIENT
  Age: 59 Year
  Sex: Female
  Weight: 66.1 kg

DRUGS (2)
  1. RAMIPRIL. [Suspect]
     Active Substance: RAMIPRIL
     Indication: ESSENTIAL HYPERTENSION
     Dosage: 5 MG, DAILY
     Route: 048
     Dates: start: 20181210
  2. BEECHAMS ALL-IN-ONE LIQUID - 160 ML [Interacting]
     Active Substance: ACETAMINOPHEN\GUAIFENESIN\PHENYLEPHRINE HYDROCHLORIDE
     Indication: NASOPHARYNGITIS
     Dosage: 2 DF, TOTAL
     Route: 048
     Dates: start: 20181210

REACTIONS (7)
  - Cerebral vasoconstriction [Unknown]
  - Thunderclap headache [Unknown]
  - Subarachnoid haemorrhage [Unknown]
  - Blood bilirubin increased [Unknown]
  - Drug interaction [Unknown]
  - Hypoaesthesia [Unknown]
  - Reversible cerebral vasoconstriction syndrome [Recovering/Resolving]

NARRATIVE: CASE EVENT DATE: 20181210
